FAERS Safety Report 22181508 (Version 1)
Quarter: 2023Q2

REPORT INFORMATION
  Report Type: Spontaneous
  Country: US (occurrence: None)
  Receive Date: 20230405
  Receipt Date: 20230405
  Transmission Date: 20230721
  Serious: Yes (Hospitalization)
  Sender: FDA-Public Use
  Company Number: None

PATIENT
  Age: 57 Year
  Sex: Female
  Weight: 39.92 kg

DRUGS (27)
  1. PROMACTA [Suspect]
     Active Substance: ELTROMBOPAG OLAMINE
     Indication: Hepatobiliary cancer
     Dosage: FREQUENCY : DAILY;?
     Route: 048
     Dates: start: 202212
  2. ABRAXANE [Concomitant]
     Active Substance: PACLITAXEL
  3. APREPITANT [Concomitant]
     Active Substance: APREPITANT
  4. ASPIRIN [Concomitant]
     Active Substance: ASPIRIN
  5. ATORVASTATIN [Concomitant]
     Active Substance: ATORVASTATIN
  6. BRILINTA [Concomitant]
     Active Substance: TICAGRELOR
  7. DIPHENHYDRAMINE [Concomitant]
     Active Substance: DIPHENHYDRAMINE
  8. FAMOTIDINE [Concomitant]
     Active Substance: FAMOTIDINE
  9. FLUCONAZOLE [Concomitant]
     Active Substance: FLUCONAZOLE
  10. LEVOFLOXACIN [Concomitant]
     Active Substance: LEVOFLOXACIN
  11. LINEZOLID [Concomitant]
     Active Substance: LINEZOLID
  12. MAGNESIUM SULFATE [Concomitant]
     Active Substance: MAGNESIUM SULFATE
  13. MANNITOL [Concomitant]
     Active Substance: MANNITOL
  14. METFORMIN [Concomitant]
     Active Substance: METFORMIN HYDROCHLORIDE
  15. METHYLPREDNISOLONE [Concomitant]
     Active Substance: METHYLPREDNISOLONE
  16. NARCAN [Concomitant]
     Active Substance: NALOXONE HYDROCHLORIDE
  17. METOPROLOL [Concomitant]
     Active Substance: METOPROLOL
  18. NORCO [Concomitant]
     Active Substance: ACETAMINOPHEN\HYDROCODONE BITARTRATE
  19. OMEPRAZOLE [Concomitant]
     Active Substance: OMEPRAZOLE
  20. ONDANSETRON [Concomitant]
     Active Substance: ONDANSETRON
  21. PANTOPRAZOLE [Concomitant]
     Active Substance: PANTOPRAZOLE
  22. POTASSIUM CHLORIDE [Concomitant]
     Active Substance: POTASSIUM CHLORIDE
  23. PROCHLORPERAZINE [Concomitant]
     Active Substance: PROCHLORPERAZINE
  24. DOCUSATE SODIUM\SENNOSIDES [Concomitant]
     Active Substance: DOCUSATE SODIUM\SENNOSIDES
  25. TYLENOL [Concomitant]
     Active Substance: ACETAMINOPHEN
  26. URSODIOL [Concomitant]
     Active Substance: URSODIOL
  27. ZOFRAN [Concomitant]
     Active Substance: ONDANSETRON HYDROCHLORIDE

REACTIONS (2)
  - Radiation injury [None]
  - Bile output increased [None]
